FAERS Safety Report 20960002 (Version 2)
Quarter: 2022Q3

REPORT INFORMATION
  Report Type: Spontaneous
  Country: US (occurrence: US)
  Receive Date: 20220615
  Receipt Date: 20220825
  Transmission Date: 20221027
  Serious: No
  Sender: FDA-Public Use
  Company Number: US-BRISTOL-MYERS SQUIBB COMPANY-2022-046239

PATIENT
  Age: 60 Year
  Sex: Female

DRUGS (1)
  1. ORENCIA [Suspect]
     Active Substance: ABATACEPT
     Indication: Rheumatoid arthritis
     Dosage: ONGOING.?BATCH NUMBER:BCUL14A?EXPIRY DATE: 30-NOV-2023
     Route: 058
     Dates: start: 20161005

REACTIONS (2)
  - Joint swelling [Unknown]
  - Arthropathy [Unknown]
